FAERS Safety Report 7177434-8 (Version None)
Quarter: 2010Q4

REPORT INFORMATION
  Report Type: 
  Country: None (occurrence: None)
  Receive Date: 20101216
  Receipt Date: 20101216
  Transmission Date: 20110411
  Serious: Yes (Hospitalization)
  Sender: FDA-Public Use
  Company Number: None

PATIENT
  Age: 69 Year
  Sex: Male
  Weight: 111 kg

DRUGS (1)
  1. METHOTREXATE [Suspect]
     Indication: ULCER
     Dosage: 25 MG QWEEK PO
     Route: 048
     Dates: start: 20100925, end: 20101009

REACTIONS (3)
  - ANAEMIA [None]
  - DRUG EFFECT DECREASED [None]
  - ULCER [None]
